FAERS Safety Report 5162308-4 (Version None)
Quarter: 2006Q4

REPORT INFORMATION
  Report Type: 
  Country: None (occurrence: None)
  Receive Date: 20060919
  Receipt Date: 20060707
  Transmission Date: 20070319
  Serious: No
  Sender: FDA-Public Use
  Company Number: 2006US001532

PATIENT
  Age: 65 Year
  Sex: Female

DRUGS (3)
  1. VESICARE [Suspect]
     Indication: DRUG USE FOR UNKNOWN INDICATION
     Dosage: 5 MG, ORAL
     Route: 048
  2. SYNTHROID [Concomitant]
  3. CLONIDINE [Concomitant]

REACTIONS (1)
  - PIGMENTATION DISORDER [None]
